FAERS Safety Report 18956697 (Version 2)
Quarter: 2021Q1

REPORT INFORMATION
  Report Type: Other
  Country: JP (occurrence: JP)
  Receive Date: 20210302
  Receipt Date: 20210305
  Transmission Date: 20210420
  Serious: Yes (Other)
  Sender: FDA-Public Use
  Company Number: JP-ROCHE-2779652

PATIENT
  Age: 70 Year
  Sex: Male

DRUGS (7)
  1. AVASTIN [Suspect]
     Active Substance: BEVACIZUMAB
     Indication: SARCOMATOID CARCINOMA
     Route: 041
     Dates: start: 202003, end: 202007
  2. TEGAFUR GIMERACIL AND OTERACIL POTASSIUM [Concomitant]
     Active Substance: GIMERACIL\OTERACIL\TEGAFUR
     Dates: start: 201805, end: 201809
  3. TEGAFUR GIMERACIL AND OTERACIL POTASSIUM [Concomitant]
     Active Substance: GIMERACIL\OTERACIL\TEGAFUR
     Indication: LYMPHANGIOSIS CARCINOMATOSA
     Dosage: DOSAGE IS UNCERTAIN.
     Route: 048
     Dates: start: 202008
  4. AVASTIN [Suspect]
     Active Substance: BEVACIZUMAB
     Indication: LYMPHANGIOSIS CARCINOMATOSA
     Route: 041
     Dates: start: 202008
  5. TEGAFUR GIMERACIL AND OTERACIL POTASSIUM [Concomitant]
     Active Substance: GIMERACIL\OTERACIL\TEGAFUR
     Dates: start: 201810, end: 201810
  6. TEGAFUR GIMERACIL AND OTERACIL POTASSIUM [Concomitant]
     Active Substance: GIMERACIL\OTERACIL\TEGAFUR
     Indication: SARCOMATOID CARCINOMA
     Dosage: 2 WEEKS ON AND 1 WEEK OFF.
     Route: 048
     Dates: start: 202003, end: 202007
  7. TEGAFUR GIMERACIL AND OTERACIL POTASSIUM [Concomitant]
     Active Substance: GIMERACIL\OTERACIL\TEGAFUR
     Dates: start: 201801, end: 2018

REACTIONS (3)
  - Intentional product use issue [Unknown]
  - Interstitial lung disease [Unknown]
  - Off label use [Unknown]

NARRATIVE: CASE EVENT DATE: 202007
